FAERS Safety Report 12326517 (Version 2)
Quarter: 2016Q2

REPORT INFORMATION
  Report Type: Spontaneous
  Country: SK (occurrence: SK)
  Receive Date: 20160503
  Receipt Date: 20160506
  Transmission Date: 20160815
  Serious: Yes (Hospitalization)
  Sender: FDA-Public Use
  Company Number: SK-ROCHE-1750497

PATIENT
  Sex: Female

DRUGS (15)
  1. LUCENTIS [Suspect]
     Active Substance: RANIBIZUMAB
     Dosage: LEFT EYE
     Route: 050
     Dates: start: 20160407, end: 20160407
  2. TORVACARD [Concomitant]
     Active Substance: ATORVASTATIN CALCIUM
  3. NEBILET [Concomitant]
     Active Substance: NEBIVOLOL
  4. ALPHA D3 [Concomitant]
  5. FORMOTEROL [Concomitant]
     Active Substance: FORMOTEROL
  6. CALTRATE [Concomitant]
     Active Substance: CALCIUM CARBONATE
  7. LUCENTIS [Suspect]
     Active Substance: RANIBIZUMAB
     Indication: DIABETIC RETINAL OEDEMA
     Dosage: SIX TIMES IN RIGHT EYE
     Route: 050
     Dates: start: 2015
  8. MOMETASONE [Concomitant]
     Active Substance: MOMETASONE
  9. LUCENTIS [Suspect]
     Active Substance: RANIBIZUMAB
     Dosage: LEFT EYE
     Route: 050
     Dates: start: 20160303
  10. MIFLONID [Concomitant]
  11. DELESIT [Concomitant]
  12. INSULIN [Concomitant]
     Active Substance: INSULIN NOS
  13. SIOFOR [Concomitant]
     Active Substance: METFORMIN HYDROCHLORIDE
  14. LACIPIL [Concomitant]
     Active Substance: LACIDIPINE
  15. TELMISARTAN. [Concomitant]
     Active Substance: TELMISARTAN

REACTIONS (1)
  - Cerebral ischaemia [Recovering/Resolving]
